FAERS Safety Report 9262107 (Version 2)
Quarter: 2013Q2

REPORT INFORMATION
  Report Type: Spontaneous
  Country: US (occurrence: US)
  Receive Date: 20130430
  Receipt Date: 20130610
  Transmission Date: 20140414
  Serious: Yes (Other)
  Sender: FDA-Public Use
  Company Number: US-AMGEN-USASP2013028422

PATIENT
  Age: 62 Year
  Sex: Female
  Weight: 92.74 kg

DRUGS (12)
  1. ENBREL [Suspect]
     Indication: RHEUMATOID ARTHRITIS
     Dosage: 25 MG, EVERY EIGHT DAYS
     Route: 058
     Dates: start: 20001101
  2. COUMADIN                           /00014802/ [Concomitant]
     Dosage: 1 MG, QD
     Route: 048
  3. TYLENOL                            /00020001/ [Concomitant]
     Dosage: 325 MG, QD
     Route: 048
  4. PROTONIX [Concomitant]
     Dosage: 40 MG, QD
     Route: 048
  5. VITAMIN D                          /00318501/ [Concomitant]
     Dosage: 1000 IU, QD
     Route: 048
  6. COZAAR [Concomitant]
     Dosage: 50 MG, QD
     Route: 048
  7. EMLA                               /00675501/ [Concomitant]
     Dosage: 2.5-2.5 %,2 TIMES WEEKLY
  8. ARMOUR THYROID [Concomitant]
     Dosage: 120 MG, QD
     Route: 048
  9. ADVAIR [Concomitant]
     Dosage: 250-50 MUG, BID
  10. SPIRIVA HANDIHALER [Concomitant]
     Dosage: 18 MUG, UNK
  11. PLAQUENIL                          /00072602/ [Concomitant]
     Dosage: 200 MG, 1 TABLET BID
     Route: 048
  12. PREDNISONE [Concomitant]
     Dosage: 5 MG, QD
     Route: 048

REACTIONS (15)
  - Pleurisy [Recovered/Resolved]
  - Dyspnoea [Not Recovered/Not Resolved]
  - Interstitial lung disease [Unknown]
  - Pneumonia [Recovered/Resolved]
  - Bronchitis [Recovered/Resolved]
  - Respiratory tract infection [Recovered/Resolved]
  - Cough [Not Recovered/Not Resolved]
  - Arthralgia [Unknown]
  - Musculoskeletal stiffness [Unknown]
  - Joint swelling [Unknown]
  - Vitamin D deficiency [Unknown]
  - Pulmonary hypertension [Unknown]
  - Hypertension [Unknown]
  - Sleep apnoea syndrome [Unknown]
  - Localised infection [Not Recovered/Not Resolved]
